FAERS Safety Report 7564520-3 (Version None)
Quarter: 2011Q2

REPORT INFORMATION
  Report Type: 
  Country: None (occurrence: None)
  Receive Date: 20110622
  Receipt Date: 20100719
  Transmission Date: 20111010
  Serious: Yes (Other)
  Sender: FDA-Public Use
  Company Number: US-MYLANLABS-2010S1006977

PATIENT
  Age: 33 Year
  Sex: Male

DRUGS (10)
  1. M.V.I. [Concomitant]
  2. DOCUSATE [Concomitant]
  3. HALDOL [Concomitant]
  4. CLOZAPINE [Suspect]
     Indication: HYPOTHYROIDISM
     Route: 048
     Dates: start: 20100302, end: 20100409
  5. OMEPRAZOLE [Concomitant]
  6. LEVOTHYROXINE SODIUM [Concomitant]
  7. CLOZAPINE [Suspect]
     Indication: SCHIZOPHRENIA, PARANOID TYPE
     Route: 048
     Dates: start: 20100302, end: 20100409
  8. CLOZAPINE [Suspect]
     Route: 048
     Dates: start: 20100302, end: 20100409
  9. CLOZAPINE [Suspect]
     Route: 048
     Dates: start: 20100302, end: 20100409
  10. HYDROCHLOROTHIAZIDE [Concomitant]

REACTIONS (2)
  - GRANULOCYTOPENIA [None]
  - LEUKOPENIA [None]
